FAERS Safety Report 10509218 (Version 4)
Quarter: 2014Q4

REPORT INFORMATION
  Report Type: Spontaneous
  Country: US (occurrence: US)
  Receive Date: 20141009
  Receipt Date: 20141017
  Transmission Date: 20150528
  Serious: Yes (Hospitalization)
  Sender: FDA-Public Use
  Company Number: US-GILEAD-2014-0117762

PATIENT
  Age: 48 Year
  Sex: Female

DRUGS (5)
  1. VENTAVIS [Concomitant]
     Active Substance: ILOPROST
  2. LETAIRIS [Suspect]
     Active Substance: AMBRISENTAN
     Indication: PRODUCT USED FOR UNKNOWN INDICATION
     Dosage: 10 MG, QD
     Route: 065
     Dates: start: 20080327
  3. COUMADIN [Concomitant]
     Active Substance: WARFARIN SODIUM
  4. REVATIO [Concomitant]
     Active Substance: SILDENAFIL CITRATE
  5. FLOLAN [Concomitant]
     Active Substance: EPOPROSTENOL SODIUM

REACTIONS (13)
  - Fatigue [Unknown]
  - Oliguria [Unknown]
  - Dyspnoea [Unknown]
  - Nausea [Unknown]
  - Pain in extremity [Unknown]
  - Abdominal discomfort [Unknown]
  - Pain in jaw [Unknown]
  - Decreased appetite [Unknown]
  - Abdominal distension [Unknown]
  - Vomiting [Unknown]
  - Dyspnoea exertional [Unknown]
  - Malaise [Unknown]
  - Chills [Unknown]
